FAERS Safety Report 20494966 (Version 1)
Quarter: 2022Q1

REPORT INFORMATION
  Report Type: Spontaneous
  Country: US (occurrence: US)
  Receive Date: 20220221
  Receipt Date: 20220221
  Transmission Date: 20220423
  Serious: Yes (Other)
  Sender: FDA-Public Use
  Company Number: US-GLENMARK PHARMACEUTICALS-2021GMK054629

PATIENT
  Age: 61 Year
  Sex: Male
  Weight: 94.7 kg

DRUGS (8)
  1. LINEZOLID [Suspect]
     Active Substance: LINEZOLID
     Indication: Meningitis enterococcal
     Dosage: 600 MILLIGRAM, BID
     Route: 042
  2. LINEZOLID [Suspect]
     Active Substance: LINEZOLID
     Indication: Enterococcal infection
  3. VANCOMYCIN [Concomitant]
     Active Substance: VANCOMYCIN
     Indication: Product used for unknown indication
     Dosage: 1.5 GRAM, BID
     Route: 042
  4. MEROPENEM [Concomitant]
     Active Substance: MEROPENEM
     Indication: Product used for unknown indication
     Dosage: 270 GRAM, TID
     Route: 042
  5. DAPTOMYCIN [Concomitant]
     Active Substance: DAPTOMYCIN
     Indication: Product used for unknown indication
     Dosage: 1100 MILLIGRAM, QD
     Route: 042
  6. TIGECYCLINE [Concomitant]
     Active Substance: TIGECYCLINE
     Indication: Product used for unknown indication
     Dosage: 50 MILLIGRAM, BID
     Route: 042
  7. DALFOPRISTIN;QUINUPRISTIN [Concomitant]
     Indication: Product used for unknown indication
     Dosage: 750 MILLIGRAM, TID
     Route: 042
  8. IVERMECTIN [Concomitant]
     Active Substance: IVERMECTIN
     Indication: Product used for unknown indication
     Dosage: 18 MILLIGRAM, QD
     Route: 048

REACTIONS (2)
  - Disseminated strongyloidiasis [Unknown]
  - Atypical dose response relationship [Unknown]
